FAERS Safety Report 11221867 (Version 1)
Quarter: 2015Q2

REPORT INFORMATION
  Report Type: Spontaneous
  Country: JP (occurrence: JP)
  Receive Date: 20150626
  Receipt Date: 20150626
  Transmission Date: 20150821
  Serious: Yes (Other)
  Sender: FDA-Public Use
  Company Number: JP-JPN-JP2015JPN087465

PATIENT
  Age: 41 Year
  Sex: Female

DRUGS (2)
  1. BUSULFEX [Concomitant]
     Active Substance: BUSULFAN
  2. ALKERAN [Suspect]
     Active Substance: MELPHALAN
     Route: 042

REACTIONS (4)
  - Crohn^s disease [Recovering/Resolving]
  - Infection [Recovering/Resolving]
  - Melaena [Recovered/Resolved]
  - Mucous membrane disorder [Recovering/Resolving]
